FAERS Safety Report 14258275 (Version 5)
Quarter: 2018Q4

REPORT INFORMATION
  Report Type: Report from Study
  Country: GB (occurrence: GB)
  Receive Date: 20171207
  Receipt Date: 20181120
  Transmission Date: 20190204
  Serious: Yes (Other)
  Sender: FDA-Public Use
  Company Number: GB-ROCHE-1925809

PATIENT
  Sex: Male

DRUGS (2)
  1. ESBRIET [Suspect]
     Active Substance: PIRFENIDONE
     Indication: PRODUCT USED FOR UNKNOWN INDICATION
     Route: 065
     Dates: start: 20170328
  2. NINTEDANIB [Concomitant]
     Active Substance: NINTEDANIB

REACTIONS (16)
  - Nausea [Unknown]
  - Dyspnoea [Unknown]
  - Depressed mood [Unknown]
  - Feeling abnormal [Unknown]
  - Heart rate increased [Unknown]
  - Oxygen saturation decreased [Unknown]
  - Nasopharyngitis [Unknown]
  - Depression [Unknown]
  - Cough [Unknown]
  - Gait disturbance [Unknown]
  - Lung infection [Unknown]
  - Malaise [Unknown]
  - Ill-defined disorder [Unknown]
  - Diarrhoea [Unknown]
  - Fatigue [Unknown]
  - Gastric disorder [Unknown]
